FAERS Safety Report 21880412 (Version 1)
Quarter: 2023Q1

REPORT INFORMATION
  Report Type: Spontaneous
  Country: US (occurrence: None)
  Receive Date: 20230117
  Receipt Date: 20230117
  Transmission Date: 20230417
  Serious: No
  Sender: FDA-Public Use
  Company Number: None

PATIENT
  Age: 67 Year
  Sex: Male

DRUGS (1)
  1. EGRIFTA SV [Suspect]
     Active Substance: TESAMORELIN ACETATE
     Dosage: 1.4MG DAILY SUBCUTANEOUS
     Route: 058

REACTIONS (4)
  - Injection site cyst [None]
  - Injection site infection [None]
  - Foreign body in skin or subcutaneous tissue [None]
  - Injection site deformation [None]

NARRATIVE: CASE EVENT DATE: 20220301
